FAERS Safety Report 6401424-3 (Version None)
Quarter: 2009Q4

REPORT INFORMATION
  Report Type: 
  Country: None (occurrence: None)
  Receive Date: 20091015
  Receipt Date: 20091012
  Transmission Date: 20100525
  Serious: Yes (Other)
  Sender: FDA-Public Use
  Company Number: US-BAYER-US-2006-026192

PATIENT
  Age: 49 Year
  Sex: Female
  Weight: 58 kg

DRUGS (17)
  1. CLIMARA [Suspect]
     Indication: MENOPAUSAL SYMPTOMS
     Dosage: 100 MCGG/24H
     Route: 062
     Dates: start: 20011005, end: 20020201
  2. CLIMARA [Suspect]
     Dosage: 50 MCG/24H
     Route: 062
     Dates: start: 20010101, end: 20020201
  3. PREMARIN [Suspect]
     Indication: MENOPAUSAL SYMPTOMS
     Dates: start: 19940901, end: 20030901
  4. ESTRATEST [Suspect]
     Indication: MENOPAUSAL SYMPTOMS
     Dosage: UNK, UNK
     Dates: start: 20000701, end: 20010101
  5. LIPITOR [Concomitant]
     Indication: BLOOD CHOLESTEROL INCREASED
     Dosage: UNK, UNK
     Dates: start: 19980101
  6. SYNTHROID [Concomitant]
     Indication: HYPOTHYROIDISM
     Dosage: TOTAL DAILY DOSE: 75 ?G
     Route: 048
     Dates: start: 20081007
  7. FOSAMAX [Concomitant]
     Indication: OSTEOPOROSIS
  8. MIACALCIN [Concomitant]
     Indication: OSTEOPOROSIS
     Route: 045
  9. LEVAQUIN [Concomitant]
     Indication: AUTOIMMUNE DISORDER
  10. OVRAL [Concomitant]
     Indication: DRUG USE FOR UNKNOWN INDICATION
     Dates: start: 19730723, end: 19770301
  11. LO/OVRAL [Concomitant]
     Indication: DRUG USE FOR UNKNOWN INDICATION
     Dates: start: 19770329
  12. ORTHO-NOVUM 7/7/7-21 [Concomitant]
  13. LEXAPRO [Concomitant]
     Indication: GENERALISED ANXIETY DISORDER
     Dosage: TOTAL DAILY DOSE: 20 MG
     Route: 048
     Dates: start: 20081218
  14. SIMVASTATIN [Concomitant]
     Indication: MIXED HYPERLIPIDAEMIA
     Dosage: TOTAL DAILY DOSE: 40 MG
     Route: 048
     Dates: start: 20081007
  15. MULTI-VITAMIN [Concomitant]
     Dosage: TOTAL DAILY DOSE: 1 DF
     Route: 048
     Dates: start: 20081007
  16. CALCIUM 600 AND VITAMIN D2 [Concomitant]
     Indication: OSTEOPOROSIS PROPHYLAXIS
     Dosage: TOTAL DAILY DOSE: 1 DF
     Route: 048
     Dates: start: 20081007
  17. BONIVA [Concomitant]
     Indication: OSTEOPOROSIS POSTMENOPAUSAL
     Dosage: TOTAL DAILY DOSE: 150 MG
     Route: 048
     Dates: start: 20081007

REACTIONS (1)
  - BREAST CANCER IN SITU [None]
